FAERS Safety Report 6192278-1 (Version None)
Quarter: 2009Q2

REPORT INFORMATION
  Report Type: 
  Country: None (occurrence: None)
  Receive Date: 20090515
  Receipt Date: 20081202
  Transmission Date: 20091009
  Serious: Yes (Disabling)
  Sender: FDA-Public Use
  Company Number: AU-B.I. PHARMACEUTICALS,INC./RIDGEFIELD-2008-BP-18690YA

PATIENT
  Sex: Male

DRUGS (3)
  1. FLOMAXTRA XL (TAMSULOSIN) ORODISPERSABLE CR TABLET 0.4MG [Suspect]
     Route: 065
     Dates: start: 20030101
  2. VITAMIN B12 [Concomitant]
  3. MELOXICAM [Concomitant]
     Dates: start: 20060106

REACTIONS (1)
  - PANCYTOPENIA [None]
